FAERS Safety Report 19399329 (Version 1)
Quarter: 2021Q2

REPORT INFORMATION
  Report Type: Spontaneous
  Country: US (occurrence: US)
  Receive Date: 20210610
  Receipt Date: 20210610
  Transmission Date: 20210717
  Serious: Yes (Other)
  Sender: FDA-Public Use
  Company Number: None

PATIENT
  Age: 26 Year
  Sex: Male
  Weight: 83.46 kg

DRUGS (1)
  1. EMTRICITABINE/TENOFOVIR DISOPROXIL [Suspect]
     Active Substance: EMTRICITABINE\TENOFOVIR DISOPROXIL
     Indication: HIGH RISK SEXUAL BEHAVIOUR
     Dosage: ?          OTHER DOSE:200/300MG ;?
     Route: 048
     Dates: start: 20210606

REACTIONS (3)
  - Diarrhoea [None]
  - Product substitution issue [None]
  - Abdominal pain upper [None]

NARRATIVE: CASE EVENT DATE: 20210606
